FAERS Safety Report 5865923-5 (Version None)
Quarter: 2008Q3

REPORT INFORMATION
  Report Type: 
  Country: None (occurrence: None)
  Receive Date: 20080829
  Receipt Date: 20080521
  Transmission Date: 20090109
  Serious: No
  Sender: FDA-Public Use
  Company Number: US-BAYER-200824006NA

PATIENT
  Age: 63 Year
  Sex: Female
  Weight: 54 kg

DRUGS (2)
  1. ULTRAVIST 300 [Suspect]
     Indication: COMPUTERISED TOMOGRAM ABDOMEN
     Route: 042
     Dates: start: 20080521, end: 20080521
  2. GASTROVIST [Concomitant]
     Route: 048
     Dates: start: 20080521, end: 20080521

REACTIONS (9)
  - BURNING SENSATION [None]
  - DIZZINESS [None]
  - EAR DISCOMFORT [None]
  - GLOSSODYNIA [None]
  - HEAD DISCOMFORT [None]
  - HYPOAESTHESIA [None]
  - HYPOAESTHESIA ORAL [None]
  - PARAESTHESIA [None]
  - PARAESTHESIA ORAL [None]
